FAERS Safety Report 6166436-6 (Version None)
Quarter: 2009Q2

REPORT INFORMATION
  Report Type: 
  Country: None (occurrence: None)
  Receive Date: 20090422
  Receipt Date: 20090422
  Transmission Date: 20091009
  Serious: Yes (Hospitalization)
  Sender: FDA-Public Use
  Company Number: None

PATIENT
  Age: 83 Year
  Sex: Male

DRUGS (2)
  1. MELOXICAM [Suspect]
     Indication: PAIN
     Dosage: 7.5 MG EVERYDAY PO
     Route: 048
     Dates: start: 20081002, end: 20090316
  2. ACETAMINOPHEN, ASPIRIN AND CAFFEINE [Suspect]
     Dosage: 1 TAB PRN PO
     Route: 048
     Dates: start: 20081015, end: 20081230

REACTIONS (3)
  - DUODENAL ULCER HAEMORRHAGE [None]
  - GASTRIC HAEMORRHAGE [None]
  - SCAR [None]
